FAERS Safety Report 7591872-0 (Version None)
Quarter: 2011Q3

REPORT INFORMATION
  Report Type: 
  Country: None (occurrence: None)
  Receive Date: 20110706
  Receipt Date: 20110614
  Transmission Date: 20111222
  Serious: Yes (Other)
  Sender: FDA-Public Use
  Company Number: US-BAYER-2011-019641

PATIENT
  Age: 14 Year
  Sex: Female
  Weight: 69.388 kg

DRUGS (7)
  1. YAZ [Suspect]
     Indication: MENSTRUATION IRREGULAR
     Dosage: UNK
     Dates: start: 20081101, end: 20090801
  2. AZITHROMYCIN [Concomitant]
     Dosage: UNK
     Dates: start: 20081223
  3. YASMIN [Suspect]
     Indication: MENSTRUATION IRREGULAR
     Dosage: UNK
     Dates: start: 20071101, end: 20081101
  4. YAZ [Suspect]
     Indication: ANAEMIA
     Dosage: UNK
     Route: 048
     Dates: start: 20080101, end: 20090101
  5. METFORMIN HCL [Concomitant]
     Dosage: UNK
     Dates: start: 20070101
  6. AMOXICILLIN [Concomitant]
     Dosage: UNK
     Dates: start: 20090112
  7. VITAMIN B-12 [Suspect]
     Dosage: UNK
     Dates: start: 20090128

REACTIONS (5)
  - EMOTIONAL DISORDER [None]
  - MENTAL DISORDER [None]
  - CHOLECYSTITIS CHRONIC [None]
  - CHOLELITHIASIS [None]
  - GALLBLADDER DISORDER [None]
